FAERS Safety Report 8556590-0 (Version None)
Quarter: 2012Q3

REPORT INFORMATION
  Report Type: 
  Country: None (occurrence: None)
  Receive Date: 20120801
  Receipt Date: 20120724
  Transmission Date: 20120928
  Serious: Yes (Hospitalization, Other)
  Sender: FDA-Public Use
  Company Number: US-ASTRAZENECA-2011SE32254

PATIENT
  Age: 54 Year
  Sex: Female
  Weight: 118.8 kg

DRUGS (67)
  1. NEXIUM [Suspect]
     Route: 048
     Dates: start: 20090223
  2. NEXIUM [Suspect]
     Route: 048
     Dates: start: 20090605
  3. NEXIUM [Suspect]
     Route: 048
     Dates: start: 20090801, end: 20110401
  4. TOPROL-XL [Concomitant]
     Dates: start: 20080724
  5. MAXZIDE [Concomitant]
     Dates: start: 20110504
  6. LOVAZA [Concomitant]
     Dates: start: 20100315
  7. CELEBREX [Concomitant]
     Dates: start: 20110504
  8. NEXIUM [Suspect]
     Indication: DYSPEPSIA
     Route: 048
     Dates: start: 20080307
  9. NEXIUM [Suspect]
     Route: 048
     Dates: start: 20100507
  10. PROZAC [Concomitant]
     Dates: start: 20100315
  11. BONIVA [Concomitant]
     Indication: OSTEOPOROSIS
     Dates: start: 20101026
  12. LOVAZA [Concomitant]
     Dates: start: 20110504
  13. MIRAPEX [Concomitant]
     Dates: start: 20100315
  14. MIRAPEX [Concomitant]
     Dates: start: 20110504
  15. NEXIUM [Suspect]
     Route: 048
     Dates: start: 20090605
  16. NEXIUM [Suspect]
     Route: 048
     Dates: start: 20100322
  17. TOPROL-XL [Concomitant]
     Indication: HYPERTENSION
  18. PROZAC [Concomitant]
     Dates: start: 20080724
  19. ASPIRIN [Concomitant]
     Dates: start: 20110504
  20. ROLAIDS [Concomitant]
  21. MAXZIDE [Concomitant]
     Dates: start: 20090223
  22. MAXZIDE [Concomitant]
     Dates: start: 20080724
  23. HYDROCODONE [Concomitant]
     Dates: start: 20101026
  24. HYDROCODONE [Concomitant]
     Dates: start: 20100315
  25. HYDROCODONE [Concomitant]
     Dosage: 5/500 MG TAKEN WHEN NEEDED
     Dates: start: 20110504
  26. GARLIC [Concomitant]
     Dosage: ONE A DAY
     Dates: start: 20090506
  27. TOPROL-XL [Concomitant]
     Dates: start: 20110504
  28. PROZAC [Concomitant]
     Indication: EMOTIONAL DISTRESS
     Dates: start: 20090506
  29. ASPIRIN [Concomitant]
  30. BONIVA [Concomitant]
     Dates: start: 20090223
  31. MAXZIDE [Concomitant]
     Dates: start: 20090605
  32. LOVAZA [Concomitant]
     Dates: start: 20090223
  33. VITAMIN B COMPLEX CAP [Concomitant]
     Dates: start: 20110504
  34. TOPROL-XL [Concomitant]
     Dates: start: 20090223
  35. CLONAZEPAM [Concomitant]
     Dosage: 1 MG TAKEN WHEN NEEDED
     Dates: start: 20110504
  36. MIRAPEX [Concomitant]
     Dates: start: 20090223
  37. HYDROCODONE [Concomitant]
     Dosage: 5 MG/500 MG
     Dates: start: 20090223
  38. CELEBREX [Concomitant]
     Dates: start: 20090605
  39. CELEBREX [Concomitant]
     Dates: start: 20090223
  40. VICODIN [Concomitant]
     Dosage: TQD FOR (30) NR
     Dates: start: 20080724
  41. LASIX [Concomitant]
     Dates: start: 20110321
  42. DIAZEPAM [Concomitant]
     Indication: ANXIETY
     Dates: start: 20110504
  43. NEXIUM [Suspect]
     Indication: GASTROOESOPHAGEAL REFLUX DISEASE
     Route: 048
     Dates: start: 20080307
  44. NEXIUM [Suspect]
     Route: 048
     Dates: start: 20080724
  45. NEXIUM [Suspect]
     Route: 048
     Dates: start: 20090223
  46. NEXIUM [Suspect]
     Route: 048
     Dates: start: 20100507
  47. NEXIUM [Suspect]
     Route: 048
     Dates: start: 20110504
  48. PEPCID [Concomitant]
  49. BONIVA [Concomitant]
     Dosage: ONCE A MONTH
     Dates: start: 20110504
  50. MAXZIDE [Concomitant]
     Dosage: 75 MG 1/2 TAB DAILY
     Dates: start: 20100322
  51. CELEBREX [Concomitant]
     Dates: start: 20080724
  52. NEXIUM [Suspect]
     Route: 048
     Dates: start: 20090801, end: 20110401
  53. NEXIUM [Suspect]
     Route: 048
     Dates: start: 20100322
  54. NEXIUM [Suspect]
     Route: 048
     Dates: start: 20110504
  55. TOPROL-XL [Concomitant]
     Dates: start: 20100315
  56. PROZAC [Concomitant]
     Dates: start: 20110504
  57. ALPRAZOLAM [Concomitant]
     Route: 048
     Dates: start: 20100317
  58. LOVAZA [Concomitant]
     Dates: start: 20101026
  59. MULTI-VITAMIN [Concomitant]
  60. NEXIUM [Suspect]
     Route: 048
     Dates: start: 20080724
  61. PROZAC [Concomitant]
     Dates: start: 20090223
  62. ASPIRIN [Concomitant]
     Dates: start: 20090223
  63. CLONAZEPAM [Concomitant]
     Indication: EMOTIONAL DISTRESS
  64. LOVAZA [Concomitant]
     Dates: start: 20080724
  65. MIRAPEX [Concomitant]
     Dates: start: 20101026
  66. LASIX [Concomitant]
     Dates: start: 20110504
  67. CALCIUM WITH VITAMIN D [Concomitant]
     Dates: start: 20110504

REACTIONS (11)
  - INTERVERTEBRAL DISC PROTRUSION [None]
  - HAND FRACTURE [None]
  - ARTHRITIS [None]
  - SPINAL OSTEOARTHRITIS [None]
  - OSTEOPOROSIS [None]
  - JOINT DISLOCATION [None]
  - BONE FORMATION DECREASED [None]
  - INTERVERTEBRAL DISC DEGENERATION [None]
  - OSTEOARTHRITIS [None]
  - BONE DISORDER [None]
  - NECK PAIN [None]
